FAERS Safety Report 6917613-5 (Version None)
Quarter: 2010Q3

REPORT INFORMATION
  Report Type: 
  Country: None (occurrence: None)
  Receive Date: 20100810
  Receipt Date: 20100728
  Transmission Date: 20110219
  Serious: Yes (Other)
  Sender: FDA-Public Use
  Company Number: US-BAYER-201028076NA

PATIENT
  Age: 57 Year
  Sex: Male

DRUGS (5)
  1. BETASERON [Suspect]
     Indication: MULTIPLE SCLEROSIS
     Dosage: TOTAL DAILY DOSE: 2 MIU
     Route: 058
     Dates: start: 20100614, end: 20100630
  2. PAXIL [Concomitant]
  3. TYLENOL PM [Concomitant]
     Dosage: AT BEDTIME
  4. DURAGESIC-100 [Concomitant]
  5. AMBIEN [Concomitant]
     Dosage: AT BEDTIME

REACTIONS (6)
  - DRUG HYPERSENSITIVITY [None]
  - NAUSEA [None]
  - PRURITUS GENERALISED [None]
  - RASH GENERALISED [None]
  - SWELLING [None]
  - VOMITING [None]
